FAERS Safety Report 8275269-6 (Version None)
Quarter: 2012Q2

REPORT INFORMATION
  Report Type: 
  Country: None (occurrence: None)
  Receive Date: 20120411
  Receipt Date: 20120330
  Transmission Date: 20120825
  Serious: Yes (Death, Other)
  Sender: FDA-Public Use
  Company Number: US-PFIZER INC-2012066567

PATIENT
  Sex: Male
  Weight: 154 kg

DRUGS (6)
  1. OXYCONTIN [Concomitant]
     Indication: PAIN
     Dosage: UNK
     Route: 048
     Dates: end: 20120316
  2. PAXIL CR [Concomitant]
     Indication: DEPRESSION
     Dosage: 12.5 MG, UNK
     Route: 048
     Dates: start: 20080101, end: 20120316
  3. TEMSIROLIMUS [Suspect]
     Indication: NEOPLASM MALIGNANT
     Dosage: 25 MG, WEEKLY
     Route: 042
     Dates: start: 20111012, end: 20120311
  4. OXYCODONE [Concomitant]
     Indication: PAIN
     Dosage: UNK
     Route: 048
     Dates: end: 20120316
  5. CAPECITABINE [Suspect]
     Indication: NEOPLASM MALIGNANT
     Dosage: 2000 MG, 2X/DAY; 7 DAYS ON, 7 DAYS OFF
     Route: 048
     Dates: start: 20111012, end: 20120311
  6. COUMADIN [Concomitant]
     Indication: EMBOLISM
     Dosage: UNK
     Route: 048
     Dates: start: 20100920, end: 20120316

REACTIONS (1)
  - DYSPNOEA [None]
